FAERS Safety Report 11184777 (Version 2)
Quarter: 2015Q3

REPORT INFORMATION
  Report Type: Spontaneous
  Country: JP (occurrence: JP)
  Receive Date: 20150612
  Receipt Date: 20150701
  Transmission Date: 20151125
  Serious: Yes (Other)
  Sender: FDA-Public Use
  Company Number: JP-PFIZER INC-2015193980

PATIENT
  Age: 67 Year
  Sex: Male
  Weight: 56 kg

DRUGS (17)
  1. ADETPHOS [Concomitant]
     Active Substance: ADENOSINE TRIPHOSPHATE
     Dosage: 60 MG, 3X/DAY
     Route: 048
  2. MUCOSTA [Concomitant]
     Active Substance: REBAMIPIDE
     Dosage: 1 DF, 3X/DAY
     Route: 048
     Dates: start: 20150515
  3. DALACIN [Concomitant]
     Active Substance: CLINDAMYCIN\CLINDAMYCIN PHOSPHATE
     Dosage: 300 MG, 3X/DAY
     Route: 048
     Dates: start: 20150517, end: 20150604
  4. MIYA-BM [Concomitant]
     Active Substance: CLOSTRIDIUM BUTYRICUM SPORES STRAIN M-55
     Dosage: 1 DF, 3X/DAY
     Route: 048
     Dates: start: 20150517
  5. AMLODIN [Concomitant]
     Active Substance: AMLODIPINE BESYLATE
     Dosage: 5 MG, 1X/DAY IN THE MORNING
     Route: 048
  6. TAKEPRON [Concomitant]
     Active Substance: LANSOPRAZOLE
     Dosage: 15 MG, 1X/DAY IN THE MORNING
     Route: 048
  7. LYRICA [Suspect]
     Active Substance: PREGABALIN
     Dosage: 25 MG IN THE MORNING; 75 MG BEFORE BEDTIME
     Route: 048
     Dates: start: 20150515
  8. LOXONIN [Suspect]
     Active Substance: LOXOPROFEN SODIUM
     Dosage: 60 MG, 3X/DAY
     Route: 048
     Dates: start: 20150515
  9. OLMETEC [Concomitant]
     Active Substance: OLMESARTAN MEDOXOMIL
     Dosage: 20 MG, 1X/DAY IN THE MORNING
     Route: 048
  10. GLIMEPIRIDE. [Concomitant]
     Active Substance: GLIMEPIRIDE
     Indication: DIABETES MELLITUS
     Dosage: 0.5 MG, 1X/DAY IN THE MORNING
     Route: 048
  11. MINOMYCIN [Concomitant]
     Active Substance: MINOCYCLINE HYDROCHLORIDE
     Dosage: 100 MG, 2X/DAY
     Route: 048
     Dates: start: 20150517, end: 20150604
  12. LIVALO [Concomitant]
     Active Substance: PITAVASTATIN CALCIUM
     Dosage: 1 MG, 1X/DAY IN THE MORNING
     Route: 048
  13. LASIX [Concomitant]
     Active Substance: FUROSEMIDE
     Dosage: 20 MG, 1X/DAY IN THE MORNING
     Route: 048
  14. LYRICA [Suspect]
     Active Substance: PREGABALIN
     Indication: POST HERPETIC NEURALGIA
     Dosage: 25 MG, 2X/DAY
     Route: 048
     Dates: start: 20150508, end: 20150515
  15. BIOFERMIN R [Suspect]
     Active Substance: BACILLUS SUBTILIS\LACTOBACILLUS ACIDOPHILUS\STREPTOCOCCUS FAECAIS
     Dosage: 1 DF, 3X/DAY
     Route: 048
     Dates: start: 20150515
  16. PREDONINE [Concomitant]
     Active Substance: PREDNISOLONE\PREDNISOLONE ACETATE\PREDNISOLONE SODIUM SUCCINATE
     Indication: PLATELET COUNT DECREASED
     Dosage: 1 DF, 1X/DAY IN THE MORNING
     Route: 048
     Dates: start: 20150512
  17. GLACTIV [Concomitant]
     Active Substance: SITAGLIPTIN
     Indication: DIABETES MELLITUS
     Dosage: 50 MG, 1X/DAY IN THE MORNING
     Route: 048

REACTIONS (3)
  - Blood creatinine increased [Not Recovered/Not Resolved]
  - Blood urea increased [Not Recovered/Not Resolved]
  - Hyperkalaemia [Recovering/Resolving]

NARRATIVE: CASE EVENT DATE: 20150604
